FAERS Safety Report 14823704 (Version 7)
Quarter: 2018Q3

REPORT INFORMATION
  Report Type: Report from Study
  Country: IT (occurrence: IT)
  Receive Date: 20180428
  Receipt Date: 20180802
  Transmission Date: 20181010
  Serious: Yes (Other)
  Sender: FDA-Public Use
  Company Number: IT-AUROBINDO-AUR-APL-2018-022712

PATIENT
  Age: 53 Year
  Sex: Male
  Weight: 109 kg

DRUGS (5)
  1. CLOPIDOGREL [Suspect]
     Active Substance: CLOPIDOGREL BISULFATE
     Indication: PRODUCT USED FOR UNKNOWN INDICATION
     Dosage: UNK
     Route: 065
  2. INFLUENZA VIRUS VACCINE [Interacting]
     Active Substance: INFLUENZA VIRUS VACCINE
     Indication: INFLUENZA IMMUNISATION
  3. ASPIRIN                            /00002701/ [Interacting]
     Active Substance: ASPIRIN
     Indication: PRODUCT USED FOR UNKNOWN INDICATION
     Dosage: UNK
     Route: 065
  4. INFLUENZA VIRUS VACCINE [Interacting]
     Active Substance: INFLUENZA VIRUS VACCINE
     Indication: IMMUNISATION
     Dosage: UNK
     Route: 065
  5. WARFARIN SODIUM. [Interacting]
     Active Substance: WARFARIN SODIUM
     Indication: ANTICOAGULANT THERAPY
     Dosage: UNK
     Route: 065

REACTIONS (9)
  - Platelet count decreased [Recovered/Resolved]
  - Labelled drug-disease interaction medication error [Unknown]
  - Drug administration error [Unknown]
  - Epistaxis [Recovered/Resolved]
  - Drug interaction [Unknown]
  - Injection site haemorrhage [Recovered/Resolved]
  - Mouth haemorrhage [Recovered/Resolved]
  - International normalised ratio increased [Recovered/Resolved]
  - Ear haemorrhage [Recovered/Resolved]
